FAERS Safety Report 6721861-7 (Version None)
Quarter: 2010Q2

REPORT INFORMATION
  Report Type: 
  Country: None (occurrence: None)
  Receive Date: 20100512
  Receipt Date: 20100428
  Transmission Date: 20101027
  Serious: Yes (Other)
  Sender: FDA-Public Use
  Company Number: PHEH2008US05098

PATIENT
  Sex: Female

DRUGS (44)
  1. AREDIA [Suspect]
  2. ZOMETA [Suspect]
     Dosage: UNK
     Dates: start: 20010101
  3. METHADONE [Concomitant]
  4. CYMBALTA [Concomitant]
  5. XANAX [Concomitant]
  6. MS CONTIN [Concomitant]
  7. VICODIN [Concomitant]
  8. ELAVIL [Concomitant]
  9. SINGULAIR [Concomitant]
  10. ELMIRON [Concomitant]
  11. VAGIFEM [Concomitant]
  12. FASLODEX [Concomitant]
  13. CENTRUM SILVER [Concomitant]
  14. PROTONIX [Concomitant]
  15. VITAMIN C [Concomitant]
  16. CALCIUM [Concomitant]
  17. OXYCONTIN [Concomitant]
  18. NORVASC [Concomitant]
  19. OMEPRAZOLE [Concomitant]
  20. LIMBREL [Concomitant]
  21. GABAPENTIN [Concomitant]
  22. FENTANYL [Concomitant]
  23. LASIX [Concomitant]
  24. CIPRO [Concomitant]
  25. BENADRYL ^ACHE^ [Concomitant]
  26. POTASSIUM [Concomitant]
  27. AVELOX [Concomitant]
  28. UROCIT-K [Concomitant]
  29. DILAUDID [Concomitant]
  30. ACIPHEX [Concomitant]
  31. NEURONTIN [Concomitant]
  32. ROBAXIN [Concomitant]
  33. TOPRAL [Concomitant]
  34. ARIXTRA [Concomitant]
  35. DOXYCYCLINE [Concomitant]
  36. EVOXAC [Concomitant]
  37. MORPHINE [Concomitant]
  38. LEXAPRO [Concomitant]
  39. TRIAMTERENE [Concomitant]
  40. PENICILLIN ^GRUNENTHAL^ [Concomitant]
  41. METOPROLOL TARTRATE [Concomitant]
  42. SUBUTEX [Concomitant]
  43. LYRICA [Concomitant]
  44. GLUCOSAMINE [Concomitant]

REACTIONS (57)
  - ACCIDENTAL OVERDOSE [None]
  - ANXIETY [None]
  - ARTHRALGIA [None]
  - BACK PAIN [None]
  - BLADDER OPERATION [None]
  - BONE DISORDER [None]
  - CARDIAC FAILURE CONGESTIVE [None]
  - CHONDROMALACIA [None]
  - CYSTITIS [None]
  - DEFORMITY [None]
  - DIZZINESS [None]
  - DRY MOUTH [None]
  - DYSPHAGIA [None]
  - EAR PAIN [None]
  - EMOTIONAL DISTRESS [None]
  - EPISTAXIS [None]
  - EYE INFECTION [None]
  - EYE PAIN [None]
  - FACIAL BONES FRACTURE [None]
  - FALL [None]
  - FEMUR FRACTURE [None]
  - GASTROINTESTINAL INFLAMMATION [None]
  - GLOSSITIS [None]
  - GROIN PAIN [None]
  - HAEMOLYTIC ANAEMIA [None]
  - HAND FRACTURE [None]
  - HIATUS HERNIA [None]
  - HIP FRACTURE [None]
  - HYPERKERATOSIS [None]
  - HYPERTONIC BLADDER [None]
  - HYPOAESTHESIA [None]
  - INFECTION [None]
  - INJURY [None]
  - INSOMNIA [None]
  - IRRITABLE BOWEL SYNDROME [None]
  - JOINT EFFUSION [None]
  - MENISCUS LESION [None]
  - METASTASES TO LIVER [None]
  - METASTASES TO LUNG [None]
  - MOUTH ULCERATION [None]
  - NECK PAIN [None]
  - NEURALGIA [None]
  - NEURITIS [None]
  - OSTEOARTHRITIS [None]
  - OSTEONECROSIS OF JAW [None]
  - PAIN [None]
  - PAIN IN EXTREMITY [None]
  - PAIN IN JAW [None]
  - PALPITATIONS [None]
  - PULMONARY OEDEMA [None]
  - PYREXIA [None]
  - RESPIRATORY DISTRESS [None]
  - SCOLIOSIS [None]
  - SINUS HEADACHE [None]
  - SLEEP APNOEA SYNDROME [None]
  - SYNOVIAL CYST [None]
  - TONGUE ULCERATION [None]
